FAERS Safety Report 5425235-0 (Version None)
Quarter: 2007Q3

REPORT INFORMATION
  Report Type: 
  Country: None (occurrence: None)
  Receive Date: 20070824
  Receipt Date: 20070813
  Transmission Date: 20080115
  Serious: Yes (Other)
  Sender: FDA-Public Use
  Company Number: IE-PFIZER INC-2007057540

PATIENT
  Sex: Female

DRUGS (11)
  1. LYRICA [Suspect]
     Route: 048
  2. GLICLAZIDE [Concomitant]
     Route: 048
  3. LANTUS [Concomitant]
     Route: 048
  4. CREAM E45 [Concomitant]
     Route: 061
  5. ASPIRIN [Concomitant]
     Route: 048
  6. LANSOPRAZOLE [Concomitant]
     Route: 048
  7. PRAVASTATIN [Concomitant]
     Route: 048
  8. METFORMIN HCL [Concomitant]
     Route: 048
  9. SOLIFENACIN SUCCINATE [Concomitant]
     Route: 048
  10. PARACETAMOL [Concomitant]
     Route: 048
  11. TRAMADOL HCL [Concomitant]
     Dosage: TEXT:150-300 MG
     Route: 048

REACTIONS (5)
  - BLOOD TRIGLYCERIDES INCREASED [None]
  - GLYCOSYLATED HAEMOGLOBIN INCREASED [None]
  - OVERDOSE [None]
  - SERUM FERRITIN INCREASED [None]
  - SOMNOLENCE [None]
